FAERS Safety Report 9642076 (Version 1)
Quarter: 2013Q4

REPORT INFORMATION
  Report Type: Spontaneous
  Country: CA (occurrence: CA)
  Receive Date: 20131023
  Receipt Date: 20131023
  Transmission Date: 20140711
  Serious: Yes (Other)
  Sender: FDA-Public Use
  Company Number: CA-ROCHE-1292614

PATIENT
  Age: 24 Year
  Sex: Female

DRUGS (3)
  1. NAPROXEN [Suspect]
     Indication: PRODUCT USED FOR UNKNOWN INDICATION
     Route: 048
  2. NOVO-LEXIN [Suspect]
     Indication: PRODUCT USED FOR UNKNOWN INDICATION
     Route: 065
  3. TYLENOL WITH CODEINE [Concomitant]
     Route: 065

REACTIONS (4)
  - Arthralgia [Unknown]
  - Fungal infection [Unknown]
  - Pain [Unknown]
  - Somnolence [Unknown]
